FAERS Safety Report 12059308 (Version 1)
Quarter: 2016Q1

REPORT INFORMATION
  Report Type: Spontaneous
  Country: US (occurrence: US)
  Receive Date: 20160210
  Receipt Date: 20160210
  Transmission Date: 20160526
  Serious: No
  Sender: FDA-Public Use
  Company Number: US-PFIZER INC-2016049826

PATIENT
  Age: 38 Year
  Sex: Male

DRUGS (17)
  1. ROXICODONE [Concomitant]
     Active Substance: OXYCODONE HYDROCHLORIDE
     Indication: PAIN
     Dosage: TAKE 1-2 TABLETS (6-10 MG)EVERY 6 HOURS AS NEEDED
     Route: 048
     Dates: start: 20150115, end: 20160121
  2. ATIVAN [Concomitant]
     Active Substance: LORAZEPAM
     Indication: SLEEP DISORDER
  3. ATIVAN [Concomitant]
     Active Substance: LORAZEPAM
     Indication: NAUSEA
  4. ATIVAN [Concomitant]
     Active Substance: LORAZEPAM
     Indication: VOMITING
  5. DECADRON [Concomitant]
     Active Substance: DEXAMETHASONE
     Dosage: 4 MG, 2X/DAY (WITH MEALS, BREAKFAST AND LUNCH)
     Route: 048
     Dates: start: 20151221
  6. COMPAZINE [Concomitant]
     Active Substance: PROCHLORPERAZINE MALEATE
     Indication: VOMITING
  7. CLINDAMAX [Concomitant]
     Active Substance: CLINDAMYCIN PHOSPHATE
     Dosage: 60 G, AS NEEDED (2 TIMES DAILY)
     Route: 061
     Dates: start: 20150617
  8. COMPAZINE [Concomitant]
     Active Substance: PROCHLORPERAZINE MALEATE
     Indication: NAUSEA
     Dosage: TAKE 1 TABLET (10 MG) EVERY 6 HOURS AS NEEDED
     Route: 048
     Dates: start: 20160114
  9. ELOXATIN [Concomitant]
     Active Substance: OXALIPLATIN
     Dosage: 130 MG/M2 X 2.31 M2, ONCE
     Route: 042
     Dates: start: 20160115, end: 20160115
  10. NEULASTA [Concomitant]
     Active Substance: PEGFILGRASTIM
     Dosage: 6MG/0.6ML, ONCE FOR 1 DOSE 24 HRS AFTER CHEMOTHERAPY
     Route: 058
     Dates: start: 20160115, end: 20160115
  11. ATIVAN [Concomitant]
     Active Substance: LORAZEPAM
     Indication: ANXIETY
     Dosage: 0.5 MG, AS NEEDED (EVERY 4 HOURS)
     Route: 048
     Dates: start: 20160114
  12. ZOFRAN [Concomitant]
     Active Substance: ONDANSETRON HYDROCHLORIDE
     Indication: NAUSEA
     Dosage: 8 MG, AS NEEDED (EVERY 8 HOURS)
     Route: 048
     Dates: start: 20160114
  13. ZOFRAN [Concomitant]
     Active Substance: ONDANSETRON HYDROCHLORIDE
     Indication: VOMITING
  14. MORPHINE [Concomitant]
     Active Substance: MORPHINE
     Dosage: 1 MG, AS NEEDED (EVERY 30 MIN PRN)
     Route: 042
     Dates: start: 20160115, end: 20160121
  15. DECADRON [Concomitant]
     Active Substance: DEXAMETHASONE
     Dosage: 4 MG, UNK
  16. ADVIL [Concomitant]
     Active Substance: IBUPROFEN
     Indication: PAIN
     Dosage: UNK UNK, AS NEEDED
     Route: 048
  17. ELLENCE [Suspect]
     Active Substance: EPIRUBICIN HYDROCHLORIDE
     Indication: TESTICULAR CANCER METASTATIC
     Dosage: 200 MG, 1X/DAY
     Route: 042
     Dates: start: 20160115, end: 20160115

REACTIONS (1)
  - Product use issue [Unknown]
